FAERS Safety Report 6734114-8 (Version None)
Quarter: 2010Q2

REPORT INFORMATION
  Report Type: 
  Country: None (occurrence: None)
  Receive Date: 20100518
  Receipt Date: 20100507
  Transmission Date: 20101027
  Serious: Yes (Hospitalization)
  Sender: FDA-Public Use
  Company Number: 583927

PATIENT
  Age: 57 Year
  Sex: Male

DRUGS (4)
  1. PHENYTOIN [Suspect]
     Indication: STATUS EPILEPTICUS
     Dosage: 1 G GRAM(S)
  2. LORAZEPAM [Concomitant]
  3. LEVETIRACETAM [Concomitant]
  4. VALPROIC ACID [Concomitant]

REACTIONS (2)
  - ACUTE GENERALISED EXANTHEMATOUS PUSTULOSIS [None]
  - HYPOCALCAEMIA [None]
